FAERS Safety Report 16151221 (Version 2)
Quarter: 2019Q2

REPORT INFORMATION
  Report Type: Spontaneous
  Country: US (occurrence: US)
  Receive Date: 20190403
  Receipt Date: 20190412
  Transmission Date: 20190711
  Serious: No
  Sender: FDA-Public Use
  Company Number: US-HORIZON-ACT-0077-2019

PATIENT
  Age: 19 Year
  Sex: Male

DRUGS (3)
  1. ACTIMMUNE [Suspect]
     Active Substance: INTERFERON GAMMA-1B
     Indication: PRODUCT USED FOR UNKNOWN INDICATION
     Dosage: 60 ?G 3 TIMES WEEKLY (MONDAY, WEDNESDAY, FRIDAY)
     Dates: start: 20131209
  2. BACTRIM [Concomitant]
     Active Substance: SULFAMETHOXAZOLE\TRIMETHOPRIM
  3. SPORANOX [Concomitant]
     Active Substance: ITRACONAZOLE

REACTIONS (2)
  - Influenza like illness [Unknown]
  - Headache [Unknown]
